FAERS Safety Report 11140128 (Version 2)
Quarter: 2015Q2

REPORT INFORMATION
  Report Type: Report from Study
  Country: US (occurrence: US)
  Receive Date: 20150527
  Receipt Date: 20150610
  Transmission Date: 20150821
  Serious: Yes (Other)
  Sender: FDA-Public Use
  Company Number: US-SA-2015SA070201

PATIENT
  Age: 37 Year
  Sex: Female

DRUGS (1)
  1. AUBAGIO [Suspect]
     Active Substance: TERIFLUNOMIDE
     Indication: MULTIPLE SCLEROSIS
     Route: 048
     Dates: start: 20150330, end: 20150602

REACTIONS (8)
  - Memory impairment [Unknown]
  - Bipolar I disorder [Unknown]
  - Depression [Unknown]
  - Muscular weakness [Recovered/Resolved]
  - Alopecia [Unknown]
  - Rash [Unknown]
  - Vascular dementia [Unknown]
  - Drug ineffective [Unknown]

NARRATIVE: CASE EVENT DATE: 2015
